APPROVED DRUG PRODUCT: DICLOFENAC SODIUM
Active Ingredient: DICLOFENAC SODIUM
Strength: 50MG
Dosage Form/Route: TABLET, DELAYED RELEASE;ORAL
Application: A074723 | Product #001
Applicant: TEVA PHARMACEUTICALS USA INC
Approved: Mar 30, 1999 | RLD: No | RS: No | Type: DISCN